FAERS Safety Report 23623568 (Version 1)
Quarter: 2024Q1

REPORT INFORMATION
  Report Type: Spontaneous
  Country: IT (occurrence: IT)
  Receive Date: 20240312
  Receipt Date: 20240312
  Transmission Date: 20240410
  Serious: Yes (Hospitalization)
  Sender: FDA-Public Use
  Company Number: None

PATIENT
  Age: 2 Month
  Sex: Male

DRUGS (6)
  1. TIGECYCLINE [Suspect]
     Active Substance: TIGECYCLINE
     Indication: Infection
     Dosage: UNK
     Route: 042
     Dates: start: 20230922, end: 20231006
  2. AVIBACTAM SODIUM\CEFTAZIDIME [Suspect]
     Active Substance: AVIBACTAM SODIUM\CEFTAZIDIME
     Indication: Infection
     Dosage: 20 MG/KG
     Route: 042
     Dates: start: 20220818, end: 20230902
  3. CEFEPIME [Suspect]
     Active Substance: CEFEPIME HYDROCHLORIDE
     Indication: Infection
     Dosage: 30 MG/KG
     Route: 042
     Dates: start: 20230922, end: 20230930
  4. COLISTIN [Suspect]
     Active Substance: COLISTIN
     Indication: Infection
     Dosage: UNK
     Dates: start: 20230912, end: 20230922
  5. AMIKACIN [Suspect]
     Active Substance: AMIKACIN
     Indication: Infection
     Dosage: 15 MG/KG
     Route: 042
     Dates: start: 20230818, end: 20230902
  6. CIPROFLOXACIN [Suspect]
     Active Substance: CIPROFLOXACIN
     Dosage: 10 MG/KG
     Dates: start: 20230902, end: 20230912

REACTIONS (2)
  - Drug ineffective [Not Recovered/Not Resolved]
  - Bacterial infection [Recovered/Resolved]

NARRATIVE: CASE EVENT DATE: 20230818
